FAERS Safety Report 7589001-2 (Version None)
Quarter: 2011Q3

REPORT INFORMATION
  Report Type: 
  Country: None (occurrence: None)
  Receive Date: 20110705
  Receipt Date: 20110608
  Transmission Date: 20111222
  Serious: Yes (Hospitalization, Other)
  Sender: FDA-Public Use
  Company Number: US-BAYER-2011-009941

PATIENT
  Age: 20 Year
  Sex: Female

DRUGS (7)
  1. YAZ [Suspect]
     Indication: CONTRACEPTION
     Dosage: 1 DF, QD
     Dates: start: 20060724, end: 20070401
  2. YASMIN [Suspect]
     Dosage: 1 DF, QD
     Dates: start: 20060426, end: 20060701
  3. PHENADOZ [Concomitant]
     Indication: HYPERSENSITIVITY
     Dosage: UNK
     Dates: start: 20081229
  4. RECLIPSEN 28 [Concomitant]
     Indication: CONTRACEPTION
     Dosage: UNK
     Dates: start: 20070501, end: 20090401
  5. HYDROCODONE BITARTRATE [Concomitant]
     Indication: PAIN
     Dosage: UNK UNK, PRN
     Dates: start: 20081227, end: 20090101
  6. YASMIN [Suspect]
     Indication: CONTRACEPTION
     Dosage: UNK
     Dates: start: 20060124, end: 20060701
  7. DROSPIRENONE AND ETHINYL ESTRADIOL [Suspect]
     Indication: CONTRACEPTION
     Dosage: 1 DF, QD
     Dates: start: 20090421, end: 20090601

REACTIONS (5)
  - GALLBLADDER DISORDER [None]
  - PANCREATOLITHIASIS [None]
  - CHOLECYSTITIS CHRONIC [None]
  - NEPHROLITHIASIS [None]
  - ABDOMINAL PAIN [None]
